FAERS Safety Report 4428115-2 (Version None)
Quarter: 2004Q3

REPORT INFORMATION
  Report Type: 
  Country: None (occurrence: None)
  Receive Date: 20040726
  Receipt Date: 20040412
  Transmission Date: 20050211
  Serious: No
  Sender: FDA-Public Use
  Company Number: USA030741896

PATIENT
  Age: 79 Year
  Sex: Female
  Weight: 49 kg

DRUGS (6)
  1. FORTEO [Suspect]
     Indication: OSTEOPOROSIS
     Dosage: 20 UG/DAY
     Dates: start: 20030717, end: 20040201
  2. NEXIUM [Concomitant]
  3. REGLAN [Concomitant]
  4. MIACALCIN [Concomitant]
  5. OSCAL (CALCIUM CARBONATE) [Concomitant]
  6. THE VISION FORMULA [Concomitant]

REACTIONS (2)
  - BLOOD ALKALINE PHOSPHATASE INCREASED [None]
  - RASH [None]
